FAERS Safety Report 9528513 (Version 1)
Quarter: 2013Q1

REPORT INFORMATION
  Report Type: Spontaneous
  Country: US (occurrence: None)
  Receive Date: 20130314
  Receipt Date: 20130314
  Transmission Date: 20140127
  Serious: No
  Sender: FDA-Public Use
  Company Number: 1212USA010274

PATIENT
  Sex: Female

DRUGS (1)
  1. VICTRELIS ( BOCEPREVIR) CAPSULE [Suspect]
     Indication: HEPATITIS C
     Dates: start: 20121223

REACTIONS (2)
  - Oral pain [None]
  - Drug administration error [None]
